FAERS Safety Report 5603882-0 (Version None)
Quarter: 2008Q1

REPORT INFORMATION
  Report Type: 
  Country: None (occurrence: None)
  Receive Date: 20080125
  Receipt Date: 20080125
  Transmission Date: 20080703
  Serious: Yes (Hospitalization)
  Sender: FDA-Public Use
  Company Number: None

PATIENT
  Sex: Male
  Weight: 79.5 kg

DRUGS (2)
  1. DAUNORUBICIN HCL [Suspect]
     Dosage: 188 MG
  2. CYTARABINE [Suspect]
     Dosage: 1200 MG

REACTIONS (7)
  - ACUTE MYELOID LEUKAEMIA [None]
  - BACK PAIN [None]
  - FLUID OVERLOAD [None]
  - INFLUENZA LIKE ILLNESS [None]
  - PNEUMONIA [None]
  - RESPIRATORY FAILURE [None]
  - TOOTH ABSCESS [None]
